FAERS Safety Report 17955920 (Version 1)
Quarter: 2020Q2

REPORT INFORMATION
  Report Type: Spontaneous
  Country: US (occurrence: US)
  Receive Date: 20200628
  Receipt Date: 20200628
  Transmission Date: 20200714
  Serious: No
  Sender: FDA-Public Use
  Company Number: None

PATIENT
  Age: 45 Year
  Sex: Female

DRUGS (1)
  1. GENERIC DIOVAN [Suspect]
     Active Substance: VALSARTAN

REACTIONS (3)
  - Cough [None]
  - Product substitution issue [None]
  - Headache [None]
